FAERS Safety Report 5905485-7 (Version None)
Quarter: 2008Q4

REPORT INFORMATION
  Report Type: 
  Country: None (occurrence: None)
  Receive Date: 20081002
  Receipt Date: 20080922
  Transmission Date: 20090506
  Serious: Yes (Other)
  Sender: FDA-Public Use
  Company Number: SE-JNJFOC-20080905482

PATIENT
  Sex: Female

DRUGS (5)
  1. REMICADE [Suspect]
     Indication: RHEUMATOID ARTHRITIS
     Route: 042
  2. METHOTREXATE [Concomitant]
  3. ORUDIS [Concomitant]
  4. CETIRIZINE HCL [Concomitant]
     Indication: PREMEDICATION
  5. SOLU-CORTEF [Concomitant]
     Indication: PREMEDICATION

REACTIONS (6)
  - CHILLS [None]
  - DIZZINESS [None]
  - INFUSION RELATED REACTION [None]
  - NAUSEA [None]
  - PALPITATIONS [None]
  - PRURITUS [None]
